FAERS Safety Report 9025631 (Version 1)
Quarter: 2013Q1

REPORT INFORMATION
  Report Type: Spontaneous
  Country: US (occurrence: US)
  Receive Date: 20130123
  Receipt Date: 20130123
  Transmission Date: 20140127
  Serious: No
  Sender: FDA-Public Use
  Company Number: US-009507513-1301USA001288

PATIENT
  Age: 56 Year
  Sex: Male

DRUGS (2)
  1. ZETIA [Suspect]
     Indication: BLOOD CHOLESTEROL INCREASED
     Dosage: 10 MG, QD
     Route: 048
     Dates: start: 20121112, end: 20130101
  2. PRAVASTATIN SODIUM [Concomitant]
     Dosage: UNK

REACTIONS (1)
  - Hepatic enzyme increased [Unknown]
